FAERS Safety Report 8479571 (Version 10)
Quarter: 2013Q4

REPORT INFORMATION
  Report Type: Spontaneous
  Country: US (occurrence: US)
  Receive Date: 20120320
  Receipt Date: 20131108
  Transmission Date: 20140711
  Serious: Yes (Hospitalization, Other)
  Sender: FDA-Public Use
  Company Number: US-009507513-2012SP006668

PATIENT
  Age: 23 Year
  Sex: Female
  Weight: 68.27 kg

DRUGS (1)
  1. NUVARING [Suspect]
     Indication: PRODUCT USED FOR UNKNOWN INDICATION
     Dosage: UNK
     Route: 067
     Dates: start: 20040324, end: 20060910

REACTIONS (8)
  - Appendicitis [Unknown]
  - Pulmonary embolism [Unknown]
  - Head injury [Unknown]
  - Muscle strain [Unknown]
  - Excoriation [Unknown]
  - Pleural effusion [Recovering/Resolving]
  - Urinary tract infection [Unknown]
  - Appendicectomy [Unknown]
